FAERS Safety Report 24404154 (Version 1)
Quarter: 2024Q4

REPORT INFORMATION
  Report Type: Spontaneous
  Country: CA (occurrence: CA)
  Receive Date: 20241007
  Receipt Date: 20241007
  Transmission Date: 20250115
  Serious: Yes (Other)
  Sender: ROCHE
  Company Number: CA-ROCHE-10000093443

PATIENT
  Age: 2 Decade
  Sex: Male

DRUGS (3)
  1. CELLCEPT [Suspect]
     Active Substance: MYCOPHENOLATE MOFETIL
     Indication: Immunosuppressant drug therapy
     Route: 065
  2. PREDNISONE [Suspect]
     Active Substance: PREDNISONE
     Indication: Immunosuppressant drug therapy
     Route: 065
  3. ACITRETIN [Suspect]
     Active Substance: ACITRETIN
     Indication: Papilloma viral infection
     Route: 065

REACTIONS (4)
  - Papilloma viral infection [Recovered/Resolved]
  - Pruritus [Recovered/Resolved]
  - Skin papilloma [Recovered/Resolved]
  - Xerosis [Recovered/Resolved]
